FAERS Safety Report 9915532 (Version 3)
Quarter: 2014Q2

REPORT INFORMATION
  Report Type: Spontaneous
  Country: FR (occurrence: FR)
  Receive Date: 20140221
  Receipt Date: 20140430
  Transmission Date: 20141212
  Serious: Yes (Other)
  Sender: FDA-Public Use
  Company Number: FR-ROCHE-1352753

PATIENT
  Sex: Male
  Weight: 100 kg

DRUGS (5)
  1. MIRCERA [Suspect]
     Indication: NEPHROGENIC ANAEMIA
     Route: 042
     Dates: start: 20131017
  2. MIRCERA [Suspect]
     Route: 042
     Dates: start: 20131114
  3. MIRCERA [Suspect]
     Route: 042
     Dates: start: 20131231, end: 20131231
  4. MIMPARA [Concomitant]
     Route: 065
  5. ARANESP [Concomitant]

REACTIONS (4)
  - Rash [Recovered/Resolved]
  - Malaise [Recovered/Resolved]
  - Circulatory collapse [Recovered/Resolved]
  - Blood pressure decreased [Recovering/Resolving]
